FAERS Safety Report 12769738 (Version 1)
Quarter: 2016Q3

REPORT INFORMATION
  Report Type: Spontaneous
  Country: SK (occurrence: SK)
  Receive Date: 20160922
  Receipt Date: 20160922
  Transmission Date: 20161109
  Serious: Yes (Death)
  Sender: FDA-Public Use
  Company Number: SK-ROCHE-1832933

PATIENT
  Age: 35 Year
  Sex: Female

DRUGS (1)
  1. ACTILYSE [Suspect]
     Active Substance: ALTEPLASE
     Indication: CEREBROVASCULAR ACCIDENT
     Route: 051
     Dates: start: 2016, end: 2016

REACTIONS (3)
  - Drug ineffective [Fatal]
  - Restlessness [Unknown]
  - Death [Fatal]

NARRATIVE: CASE EVENT DATE: 2016
